FAERS Safety Report 6346004-3 (Version None)
Quarter: 2009Q3

REPORT INFORMATION
  Report Type: 
  Country: None (occurrence: None)
  Receive Date: 20090821
  Receipt Date: 20090618
  Transmission Date: 20100115
  Serious: No
  Sender: FDA-Public Use
  Company Number: 8047904

PATIENT
  Age: 34 Year
  Sex: Female
  Weight: 86.4 kg

DRUGS (9)
  1. CIMZIA [Suspect]
     Indication: CROHN'S DISEASE
     Dosage: 400 MG 1/2W SC
     Route: 058
     Dates: start: 20090601
  2. METHADONE HCL [Concomitant]
  3. LISINOPRIL [Concomitant]
  4. ZANAFLEX [Concomitant]
  5. METHOTREXATE [Concomitant]
  6. TOPROL-XL [Concomitant]
  7. PRILOSEC [Concomitant]
  8. AMBIEN [Concomitant]
  9. APRI [Concomitant]

REACTIONS (2)
  - BLOOD PRESSURE INCREASED [None]
  - INJECTION SITE DISCOLOURATION [None]
